FAERS Safety Report 14044445 (Version 1)
Quarter: 2017Q4

REPORT INFORMATION
  Report Type: Spontaneous
  Country: US (occurrence: US)
  Receive Date: 20171004
  Receipt Date: 20171004
  Transmission Date: 20180321
  Serious: Yes (Other)
  Sender: FDA-Public Use
  Company Number: None

PATIENT
  Age: 77 Year
  Sex: Female
  Weight: 88 kg

DRUGS (1)
  1. ZALEPLON. [Suspect]
     Active Substance: ZALEPLON
     Indication: INSOMNIA
     Route: 048
     Dates: start: 20171004, end: 20171004

REACTIONS (4)
  - Cough [None]
  - Pulmonary hypertension [None]
  - Headache [None]
  - Respiratory depression [None]

NARRATIVE: CASE EVENT DATE: 20171004
